FAERS Safety Report 8737767 (Version 3)
Quarter: 2013Q2

REPORT INFORMATION
  Report Type: Report from Study
  Country: JP (occurrence: JP)
  Receive Date: 20120822
  Receipt Date: 20130406
  Transmission Date: 20140414
  Serious: No
  Sender: FDA-Public Use
  Company Number: JP-009507513-1208JPN003915

PATIENT
  Age: 50 Year
  Sex: Female
  Weight: 58 kg

DRUGS (10)
  1. PEGINTRON [Suspect]
     Indication: CHRONIC HEPATITIS C
     Dosage: 1.39 MICROGRAM PER KILOGRAM, QW
     Route: 058
     Dates: start: 20120524
  2. REBETOL [Suspect]
     Indication: CHRONIC HEPATITIS C
     Dosage: 600 MG, QD
     Route: 048
     Dates: start: 20120524, end: 20120614
  3. REBETOL [Suspect]
     Dosage: 400 MG, QD
     Route: 048
     Dates: start: 20120615
  4. TELAVIC [Suspect]
     Indication: CHRONIC HEPATITIS C
     Dosage: 1500 MG, QD
     Route: 048
     Dates: start: 20120524, end: 20120816
  5. URSO [Concomitant]
     Indication: CHRONIC HEPATITIS C
     Dosage: 600 MG, QD
     Route: 048
     Dates: end: 20120523
  6. HICEE [Concomitant]
     Indication: HYPOVITAMINOSIS
     Dosage: 2 G, QD, FORMULATION : POR
     Route: 048
     Dates: end: 20120523
  7. JUVELA [Concomitant]
     Indication: HYPOVITAMINOSIS
     Dosage: 150 MG, QD, FORMULATION: POR
     Route: 048
     Dates: end: 20120523
  8. DIACORT [Concomitant]
     Dosage: UNK
     Route: 051
     Dates: end: 20120921
  9. ALLEGRA [Concomitant]
     Dosage: 120 MG, QD, FORMULATION : POR
     Route: 048
     Dates: end: 20120921
  10. ZYLORIC [Concomitant]
     Dosage: 100 MG, QD, FORMULATION : POR
     Route: 048
     Dates: end: 20120831

REACTIONS (5)
  - Drug eruption [Recovered/Resolved]
  - Hyperuricaemia [Recovered/Resolved]
  - Anaemia [Recovered/Resolved]
  - White blood cell count decreased [None]
  - Neutrophil count decreased [None]
